FAERS Safety Report 9759582 (Version 2)
Quarter: 2013Q4

REPORT INFORMATION
  Report Type: Spontaneous
  Country: US (occurrence: US)
  Receive Date: 20131216
  Receipt Date: 20131216
  Transmission Date: 20140711
  Serious: No
  Sender: FDA-Public Use
  Company Number: US-GILEAD-2010-0028012

PATIENT
  Sex: Male
  Weight: 68.04 kg

DRUGS (15)
  1. LETAIRIS [Suspect]
     Indication: PULMONARY ARTERIAL HYPERTENSION
     Route: 048
     Dates: start: 20100219
  2. LASIX [Concomitant]
  3. METOPROLOL [Concomitant]
  4. SIMVASTATIN [Concomitant]
  5. PRILOSEC [Concomitant]
  6. KLONOPIN [Concomitant]
  7. XANAX [Concomitant]
  8. LEVOTHROID [Concomitant]
  9. FOSAMAX [Concomitant]
  10. COLCHICINE [Concomitant]
  11. GUAIFENESIN [Concomitant]
  12. VISION FORMULA [Concomitant]
  13. FISH OIL [Concomitant]
  14. KLOR-CON [Concomitant]
  15. CALCIUM CARB W/D [Concomitant]

REACTIONS (1)
  - Dyspnoea [Unknown]
